FAERS Safety Report 5198868-7 (Version None)
Quarter: 2006Q4

REPORT INFORMATION
  Report Type: 
  Country: None (occurrence: None)
  Receive Date: 20060926
  Receipt Date: 20060517
  Transmission Date: 20070319
  Serious: Yes (Life-Threatening, Hospitalization)
  Sender: FDA-Public Use
  Company Number: BDI-008233

PATIENT
  Age: 53 Year
  Sex: Male

DRUGS (3)
  1. RENO-60 [Suspect]
     Indication: BACK PAIN
     Dosage: IT
     Route: 037
     Dates: start: 20060220, end: 20060220
  2. RENO-60 [Suspect]
     Indication: DRUG THERAPY
     Dosage: IT
     Route: 037
     Dates: start: 20060220, end: 20060220
  3. BACLOFEN [Concomitant]

REACTIONS (5)
  - COMA [None]
  - INCORRECT ROUTE OF DRUG ADMINISTRATION [None]
  - LOSS OF CONSCIOUSNESS [None]
  - MUSCLE SPASMS [None]
  - NERVOUS SYSTEM DISORDER [None]
